FAERS Safety Report 17255670 (Version 1)
Quarter: 2020Q1

REPORT INFORMATION
  Report Type: Spontaneous
  Country: FR (occurrence: FR)
  Receive Date: 20200110
  Receipt Date: 20200110
  Transmission Date: 20200409
  Serious: Yes (Other)
  Sender: FDA-Public Use
  Company Number: FR-TEVA-2020-FR-1166045

PATIENT
  Sex: Female
  Weight: 60 kg

DRUGS (1)
  1. RISPERIDONE. [Suspect]
     Active Substance: RISPERIDONE
     Indication: PARANOIA
     Route: 065

REACTIONS (3)
  - Obesity [Unknown]
  - Weight increased [Unknown]
  - Invasive breast carcinoma [Unknown]
